FAERS Safety Report 5592994-6 (Version None)
Quarter: 2008Q1

REPORT INFORMATION
  Report Type: 
  Country: None (occurrence: None)
  Receive Date: 20080114
  Receipt Date: 20080114
  Transmission Date: 20080703
  Serious: Yes (Hospitalization)
  Sender: FDA-Public Use
  Company Number: None

PATIENT
  Sex: Male
  Weight: 123 kg

DRUGS (2)
  1. CELLCEPT [Suspect]
     Indication: PROPHYLAXIS AGAINST TRANSPLANT REJECTION
     Dosage: 250MG TWICE DAILY PO
     Route: 048
     Dates: start: 20060221, end: 20061217
  2. PROGRAF [Suspect]
     Dosage: 1MG TWICE DAILY PO
     Route: 048
     Dates: start: 20060301

REACTIONS (3)
  - ASTHENIA [None]
  - LYMPHOPROLIFERATIVE DISORDER [None]
  - SPEECH DISORDER [None]
